FAERS Safety Report 9987944 (Version 1)
Quarter: 2014Q1

REPORT INFORMATION
  Report Type: Report from Study
  Country: US (occurrence: US)
  Receive Date: 20140307
  Receipt Date: 20140307
  Transmission Date: 20141002
  Serious: Yes (Death, Other)
  Sender: FDA-Public Use
  Company Number: US-ASTRAZENECA-2014SE15486

PATIENT
  Age: 83 Year
  Sex: Female

DRUGS (16)
  1. SYMBICORT [Suspect]
     Indication: CHRONIC OBSTRUCTIVE PULMONARY DISEASE
     Dosage: 160/4.5 MCG, 2 PUFFS, TWO TIMES A DAY
     Route: 055
  2. LISINOPRIL [Suspect]
     Route: 048
  3. OMEPRAZOLE [Suspect]
     Route: 048
  4. PREDNISONE [Concomitant]
  5. CARVEDILOL [Concomitant]
  6. DIGOXIN [Concomitant]
  7. SPIRIVA [Concomitant]
  8. PROAIR [Concomitant]
     Indication: RESPIRATORY DISORDER
  9. ASPIRIN [Concomitant]
  10. LOVASTATIN [Concomitant]
  11. METHADONE [Concomitant]
  12. SINGULAIR [Concomitant]
  13. DUO NEBS [Concomitant]
  14. VITAMIN C [Concomitant]
  15. VITAMIN D [Concomitant]
  16. IRON SUPPLEMENT [Concomitant]

REACTIONS (4)
  - Death [Fatal]
  - Cardiac disorder [Unknown]
  - Pulmonary function test decreased [Unknown]
  - Pain [Unknown]
